FAERS Safety Report 8488645 (Version 2)
Quarter: 2013Q1

REPORT INFORMATION
  Report Type: Spontaneous
  Country: US (occurrence: US)
  Receive Date: 20120402
  Receipt Date: 20130304
  Transmission Date: 20140127
  Serious: No
  Sender: FDA-Public Use
  Company Number: US-ABBOTT-11P-163-0874655-00

PATIENT
  Sex: Male
  Weight: 100.33 kg

DRUGS (1)
  1. ANDROGEL 1% [Suspect]
     Indication: BLOOD TESTOSTERONE DECREASED
     Dates: start: 2004

REACTIONS (1)
  - Blood testosterone decreased [Not Recovered/Not Resolved]
